FAERS Safety Report 7258919-2 (Version None)
Quarter: 2011Q1

REPORT INFORMATION
  Report Type: 
  Country: None (occurrence: None)
  Receive Date: 20110129
  Receipt Date: 20100608
  Transmission Date: 20110831
  Serious: No
  Sender: FDA-Public Use
  Company Number: US-ABBOTT-10P-163-0651242-00

PATIENT
  Sex: Female

DRUGS (4)
  1. HUMIRA [Suspect]
     Indication: RHEUMATOID ARTHRITIS
  2. PREDNISONE [Suspect]
     Indication: RHEUMATOID ARTHRITIS
     Route: 048
  3. ARAVA [Suspect]
     Indication: RHEUMATOID ARTHRITIS
  4. UNKNOWN MEDICATIONS [Concomitant]
     Indication: HYPERTENSION

REACTIONS (4)
  - HEADACHE [None]
  - ALOPECIA [None]
  - RASH [None]
  - SENSITIVITY OF TEETH [None]
